FAERS Safety Report 25042343 (Version 5)
Quarter: 2025Q2

REPORT INFORMATION
  Report Type: Spontaneous
  Country: FR (occurrence: FR)
  Receive Date: 20250305
  Receipt Date: 20250430
  Transmission Date: 20250717
  Serious: Yes (Hospitalization, Disabling, Other)
  Sender: PFIZER
  Company Number: FR-PFIZER INC-PV202500024978

PATIENT
  Age: 27 Year
  Sex: Female

DRUGS (12)
  1. ETHINYL ESTRADIOL\LEVONORGESTREL [Suspect]
     Active Substance: ETHINYL ESTRADIOL\LEVONORGESTREL
     Indication: Contraception
     Route: 048
     Dates: start: 20040318
  2. BRICANYL [Concomitant]
     Active Substance: TERBUTALINE SULFATE
     Indication: Asthma
  3. PULMICORT TURBUHALER [Concomitant]
     Active Substance: BUDESONIDE
     Indication: Asthma
  4. SYMBICORT [Concomitant]
     Active Substance: BUDESONIDE\FORMOTEROL FUMARATE DIHYDRATE
     Indication: Asthma
  5. NOVORAPID [Concomitant]
     Active Substance: INSULIN ASPART
     Indication: Insulin-requiring type 2 diabetes mellitus
     Dosage: 20 IU, 3X/DAY (MORNING, MIDDAY AND EVENING)
  6. NICARDIPINE HYDROCHLORIDE [Concomitant]
     Active Substance: NICARDIPINE HYDROCHLORIDE
  7. TRANDATE [Concomitant]
     Active Substance: LABETALOL HYDROCHLORIDE
  8. LEVOTHYROXINE [Concomitant]
     Active Substance: LEVOTHYROXINE
  9. EZETIMIBE\ROSUVASTATIN CALCIUM [Concomitant]
     Active Substance: EZETIMIBE\ROSUVASTATIN CALCIUM
  10. ESOMEPRAZOLE [Concomitant]
     Active Substance: ESOMEPRAZOLE
  11. METEOSPASMYL (ALVERINE CITRATE\DIMETHICONE) [Concomitant]
     Active Substance: ALVERINE CITRATE\DIMETHICONE
  12. ACETAMINOPHEN [Concomitant]
     Active Substance: ACETAMINOPHEN

REACTIONS (30)
  - Cerebral venous thrombosis [Recovered/Resolved]
  - Myocardial infarction [Unknown]
  - Chest pain [Unknown]
  - Angina pectoris [Unknown]
  - Cerebrovascular accident [Unknown]
  - Cerebral infarction [Unknown]
  - Acute coronary syndrome [Unknown]
  - Troponin increased [Unknown]
  - Type 1 diabetes mellitus [Unknown]
  - Hallucinations, mixed [Unknown]
  - Infection [Unknown]
  - Leiomyoma [Unknown]
  - Second primary malignancy [Unknown]
  - Muscular weakness [Unknown]
  - Amnesia [Unknown]
  - Tremor [Unknown]
  - Visual impairment [Unknown]
  - Disorientation [Unknown]
  - Asthenia [Unknown]
  - Memory impairment [Unknown]
  - Ovarian cyst [Unknown]
  - Heavy menstrual bleeding [Unknown]
  - Lymphadenopathy [Unknown]
  - Depression [Unknown]
  - Sleep disorder [Unknown]
  - Infection parasitic [Unknown]
  - Migraine [Unknown]
  - Arthralgia [Unknown]
  - Abscess limb [Unknown]
  - Abdominal pain [Unknown]

NARRATIVE: CASE EVENT DATE: 20040601
